FAERS Safety Report 10993221 (Version 1)
Quarter: 2015Q2

REPORT INFORMATION
  Report Type: Spontaneous
  Country: US (occurrence: US)
  Receive Date: 20150407
  Receipt Date: 20150407
  Transmission Date: 20150821
  Serious: Yes (Other)
  Sender: FDA-Public Use
  Company Number: US-BEH-2015050036

PATIENT
  Sex: Male
  Weight: 20 kg

DRUGS (17)
  1. CENTRUM KIDS MULTIVITAMIN [Concomitant]
  2. ROBINUL [Concomitant]
     Active Substance: GLYCOPYRROLATE
  3. SULFAMETHOXAZOL [Concomitant]
     Active Substance: SULFAMETHOXAZOLE
  4. GAS-X [Concomitant]
     Active Substance: DIMETHICONE
  5. FLUTICASONE [Concomitant]
     Active Substance: FLUTICASONE\FLUTICASONE PROPIONATE
  6. SALINE NASAL SPRAY [Concomitant]
     Active Substance: SODIUM CHLORIDE
  7. ACETAMINOPHEN. [Concomitant]
     Active Substance: ACETAMINOPHEN
  8. LMX [Concomitant]
     Active Substance: LIDOCAINE
  9. PREVACID [Concomitant]
     Active Substance: LANSOPRAZOLE
  10. VSL #3 [Concomitant]
  11. HIZENTRA [Suspect]
     Active Substance: HUMAN IMMUNOGLOBULIN G
     Indication: IMMUNODEFICIENCY COMMON VARIABLE
     Route: 058
  12. BACITRACIN. [Concomitant]
     Active Substance: BACITRACIN
  13. DIPHENHYDRAMINE [Concomitant]
     Active Substance: DIPHENHYDRAMINE
  14. EPIPEN [Concomitant]
     Active Substance: EPINEPHRINE
  15. CEFTIN [Concomitant]
     Active Substance: CEFUROXIME AXETIL
  16. LIDOCAINE/PRILOCAINE [Concomitant]
  17. ACARBOSE. [Concomitant]
     Active Substance: ACARBOSE

REACTIONS (2)
  - Haemorrhage [Unknown]
  - Swelling [Recovered/Resolved]
